FAERS Safety Report 7158161-X (Version None)
Quarter: 2010Q4

REPORT INFORMATION
  Report Type: 
  Country: None (occurrence: None)
  Receive Date: 20101214
  Receipt Date: 20100504
  Transmission Date: 20110411
  Serious: No
  Sender: FDA-Public Use
  Company Number: US-ASTRAZENECA-2010SE20151

PATIENT
  Age: 835 Month
  Sex: Female
  Weight: 59 kg

DRUGS (7)
  1. CRESTOR [Suspect]
     Indication: BLOOD CHOLESTEROL INCREASED
     Route: 048
     Dates: start: 20081001
  2. VENLAFAXINE HCL [Concomitant]
     Indication: ANXIETY
  3. ASPIRIN [Concomitant]
  4. VITAMINS [Concomitant]
  5. CALCIUM PLUS VITAMIN D [Concomitant]
  6. NIACIN [Concomitant]
  7. PLAVIX [Concomitant]

REACTIONS (1)
  - JOINT SPRAIN [None]
